FAERS Safety Report 10879463 (Version 1)
Quarter: 2015Q1

REPORT INFORMATION
  Report Type: Spontaneous
  Country: US (occurrence: US)
  Receive Date: 20150302
  Receipt Date: 20150302
  Transmission Date: 20150721
  Serious: Yes (Disabling, Other)
  Sender: FDA-Public Use
  Company Number: US-CELGENEUS-163-21880-14033055

PATIENT
  Age: 60 Year
  Sex: Female

DRUGS (3)
  1. OXYCODONE ACETATE [Suspect]
     Active Substance: OXYCODONE
     Indication: BACK PAIN
     Route: 065
  2. REVLIMID [Suspect]
     Active Substance: LENALIDOMIDE
     Indication: MYELOFIBROSIS
     Route: 048
     Dates: start: 20140310
  3. REVLIMID [Suspect]
     Active Substance: LENALIDOMIDE
     Route: 048
     Dates: start: 20140708

REACTIONS (11)
  - Pruritus [Not Recovered/Not Resolved]
  - Back pain [Unknown]
  - Dizziness [Unknown]
  - Headache [Unknown]
  - Insomnia [Unknown]
  - Gingival pain [Unknown]
  - Ear pain [Unknown]
  - Back pain [Unknown]
  - Cough [Unknown]
  - Dry skin [Not Recovered/Not Resolved]
  - Constipation [Unknown]

NARRATIVE: CASE EVENT DATE: 2014
